FAERS Safety Report 5489832-9 (Version None)
Quarter: 2007Q4

REPORT INFORMATION
  Report Type: 
  Country: None (occurrence: None)
  Receive Date: 20071018
  Receipt Date: 20070921
  Transmission Date: 20080405
  Serious: Yes (Death)
  Sender: FDA-Public Use
  Company Number: DE-BRISTOL-MYERS SQUIBB COMPANY-13924469

PATIENT
  Sex: Male

DRUGS (4)
  1. ETOPOSIDE [Suspect]
     Indication: GERM CELL CANCER
  2. IFOSFAMIDE [Suspect]
     Indication: GERM CELL CANCER
  3. CISPLATIN [Suspect]
     Indication: GERM CELL CANCER
  4. CARBOPLATIN [Suspect]

REACTIONS (1)
  - INFECTION [None]
